FAERS Safety Report 4463041-4 (Version None)
Quarter: 2004Q3

REPORT INFORMATION
  Report Type: 
  Country: None (occurrence: None)
  Receive Date: 20040928
  Receipt Date: 20040913
  Transmission Date: 20050211
  Serious: Yes (Other)
  Sender: FDA-Public Use
  Company Number: 2004-DE-04822DE

PATIENT
  Age: 25 Year
  Sex: Female

DRUGS (1)
  1. SPIRIVA [Suspect]
     Dosage: 3 CAPSULES OVER 24 HOURS (NR, 3 CAPSULES) PO
     Route: 048

REACTIONS (3)
  - CHEST PAIN [None]
  - DRUG ABUSER [None]
  - DYSPNOEA [None]
